FAERS Safety Report 5286037-1 (Version None)
Quarter: 2007Q1

REPORT INFORMATION
  Report Type: 
  Country: None (occurrence: None)
  Receive Date: 20070329
  Receipt Date: 20070323
  Transmission Date: 20070707
  Serious: Yes (Death)
  Sender: FDA-Public Use
  Company Number: 200703IM000116

PATIENT
  Sex: Male
  Weight: 61.3 kg

DRUGS (1)
  1. ACTIMMUNE [Suspect]
     Indication: CHRONIC GRANULOMATOUS DISEASE
     Dosage: 100 UG, TIW, SUBCUTANEOUS
     Route: 058
     Dates: start: 20030701

REACTIONS (6)
  - ALCOHOL USE [None]
  - COMPLETED SUICIDE [None]
  - DRUG ABUSER [None]
  - INJURY ASPHYXIATION [None]
  - INTENTIONAL SELF-INJURY [None]
  - TREATMENT NONCOMPLIANCE [None]
